FAERS Safety Report 23328932 (Version 1)
Quarter: 2023Q4

REPORT INFORMATION
  Report Type: Spontaneous
  Country: US (occurrence: US)
  Receive Date: 20231222
  Receipt Date: 20231222
  Transmission Date: 20240110
  Serious: Yes (Other)
  Sender: FDA-Public Use
  Company Number: US-ABBVIE-5551288

PATIENT
  Sex: Female

DRUGS (2)
  1. REFRESH CELLUVISC [Suspect]
     Active Substance: CARBOXYMETHYLCELLULOSE SODIUM
     Indication: Dry eye
     Route: 047
  2. REFRESH CLASSIC [Suspect]
     Active Substance: POLYVINYL ALCOHOL\POVIDONE
     Indication: Dry eye
     Route: 065

REACTIONS (3)
  - Cataract [Unknown]
  - Illness [Unknown]
  - Eye irritation [Unknown]
